FAERS Safety Report 4426473-6 (Version None)
Quarter: 2004Q3

REPORT INFORMATION
  Report Type: 
  Country: None (occurrence: None)
  Receive Date: 20040816
  Receipt Date: 20040802
  Transmission Date: 20050211
  Serious: Yes (Hospitalization)
  Sender: FDA-Public Use
  Company Number: JP-JNJFOC-20031202110

PATIENT
  Sex: Female
  Weight: 48 kg

DRUGS (18)
  1. REMICADE [Suspect]
     Route: 041
  2. REMICADE [Suspect]
     Indication: RHEUMATOID ARTHRITIS
     Route: 041
  3. RHEUMATREX [Suspect]
     Route: 049
     Dates: start: 20030801, end: 20040331
  4. RHEUMATREX [Suspect]
     Indication: RHEUMATOID ARTHRITIS
     Route: 049
     Dates: start: 20030801, end: 20040331
  5. PREDNISOLONE [Suspect]
     Route: 049
  6. PREDNISOLONE [Suspect]
     Route: 049
  7. PREDNISOLONE [Suspect]
     Route: 049
  8. PREDNISOLONE [Suspect]
     Indication: RHEUMATOID ARTHRITIS
     Route: 049
  9. ISCOTIN [Suspect]
     Route: 049
     Dates: start: 20031017, end: 20031127
  10. LOXOTE [Concomitant]
     Route: 049
     Dates: start: 20021010
  11. FOLIAMIN [Concomitant]
     Route: 049
     Dates: start: 20030801
  12. ULBAN A [Concomitant]
     Route: 049
     Dates: start: 20030828
  13. LOMINIAN [Concomitant]
     Route: 049
     Dates: start: 20020926
  14. PLATIBIT [Concomitant]
     Route: 049
     Dates: start: 20011205
  15. LIPOKOBAN [Concomitant]
     Route: 049
     Dates: start: 20031017
  16. SELINALEET [Concomitant]
     Route: 049
     Dates: start: 20030214
  17. FAMOTIDINE [Concomitant]
     Route: 049
     Dates: start: 20021115
  18. BONARON [Concomitant]
     Route: 049
     Dates: start: 20020209

REACTIONS (14)
  - ALANINE AMINOTRANSFERASE INCREASED [None]
  - ASPARTATE AMINOTRANSFERASE INCREASED [None]
  - BLOOD ALKALINE PHOSPHATASE INCREASED [None]
  - BLOOD LACTATE DEHYDROGENASE INCREASED [None]
  - DRUG INTERACTION [None]
  - GAMMA-GLUTAMYLTRANSFERASE INCREASED [None]
  - HAEMATOCRIT DECREASED [None]
  - HEPATIC FUNCTION ABNORMAL [None]
  - LIVER DISORDER [None]
  - LUNG DISORDER [None]
  - PLATELET COUNT DECREASED [None]
  - PNEUMONIA [None]
  - PULMONARY MYCOSIS [None]
  - RED BLOOD CELL COUNT DECREASED [None]
